FAERS Safety Report 24041966 (Version 1)
Quarter: 2024Q3

REPORT INFORMATION
  Report Type: Spontaneous
  Country: DE (occurrence: DE)
  Receive Date: 20240702
  Receipt Date: 20240702
  Transmission Date: 20241016
  Serious: Yes (Other)
  Sender: BRISTOL MYERS SQUIBB
  Company Number: DE-INCYTE CORPORATION-2024IN006730

PATIENT
  Age: 8 Decade
  Sex: Male

DRUGS (2)
  1. LENALIDOMIDE [Suspect]
     Active Substance: LENALIDOMIDE
     Indication: Diffuse large B-cell lymphoma
     Dosage: 25 MILLIGRAM
     Dates: start: 20230321, end: 202310
  2. TAFASITAMAB [Suspect]
     Active Substance: TAFASITAMAB
     Indication: Diffuse large B-cell lymphoma
     Dosage: 12 MILLIGRAM/KILOGRAM
     Dates: start: 20230321, end: 202310

REACTIONS (5)
  - Femur fracture [Unknown]
  - Arthropathy [Unknown]
  - Atypical pneumonia [Unknown]
  - Fall [Unknown]
  - Off label use [Unknown]
